FAERS Safety Report 6692951-2 (Version None)
Quarter: 2010Q2

REPORT INFORMATION
  Report Type: 
  Country: None (occurrence: None)
  Receive Date: 20100422
  Receipt Date: 20100412
  Transmission Date: 20101027
  Serious: Yes (Hospitalization)
  Sender: FDA-Public Use
  Company Number: JP-ABBOTT-07P-087-0369460-00

PATIENT
  Age: 89 Year
  Sex: Male

DRUGS (2)
  1. LEUPLIN SR FOR INJECTION KIT [Suspect]
     Indication: PROSTATE CANCER STAGE IV
     Route: 058
     Dates: start: 20061010
  2. CASODEX [Concomitant]
     Indication: PROSTATE CANCER STAGE IV
     Route: 048
     Dates: start: 20060926

REACTIONS (5)
  - DYSURIA [None]
  - EPIDIDYMITIS [None]
  - SCROTAL ABSCESS [None]
  - URINARY INCONTINENCE [None]
  - URINARY TRACT INFECTION [None]
